FAERS Safety Report 24668430 (Version 1)
Quarter: 2024Q4

REPORT INFORMATION
  Report Type: Report from Study
  Country: CN (occurrence: CN)
  Receive Date: 20241127
  Receipt Date: 20241127
  Transmission Date: 20250114
  Serious: Yes (Death)
  Sender: ROCHE
  Company Number: CN-ROCHE-10000137995

PATIENT

DRUGS (8)
  1. ATEZOLIZUMAB [Suspect]
     Active Substance: ATEZOLIZUMAB
     Indication: Neoplasm malignant
     Route: 042
  2. SINTILIMAB [Suspect]
     Active Substance: SINTILIMAB
     Indication: Neoplasm malignant
     Route: 042
  3. CAMRELIZUMAB [Suspect]
     Active Substance: CAMRELIZUMAB
     Indication: Neoplasm malignant
     Route: 042
  4. PEMBROLIZUMAB [Suspect]
     Active Substance: PEMBROLIZUMAB
     Indication: Neoplasm malignant
     Route: 042
  5. TORIPALIMAB [Suspect]
     Active Substance: TORIPALIMAB
     Indication: Neoplasm malignant
     Route: 042
  6. TISLELIZUMAB [Suspect]
     Active Substance: TISLELIZUMAB
     Indication: Neoplasm malignant
     Route: 042
  7. NIVOLUMAB [Suspect]
     Active Substance: NIVOLUMAB
     Indication: Neoplasm malignant
     Dosage: 240 MG OR 3 MG/KG
     Route: 042
  8. DURVALUMAB [Suspect]
     Active Substance: DURVALUMAB
     Indication: Neoplasm malignant
     Route: 042

REACTIONS (2)
  - Drug-induced liver injury [Fatal]
  - Acute hepatic failure [Fatal]
